FAERS Safety Report 6763813-7 (Version None)
Quarter: 2010Q2

REPORT INFORMATION
  Report Type: 
  Country: None (occurrence: None)
  Receive Date: 20100608
  Receipt Date: 20100526
  Transmission Date: 20101027
  Serious: Yes (Other)
  Sender: FDA-Public Use
  Company Number: 7006188

PATIENT
  Age: 60 Year
  Sex: Male

DRUGS (1)
  1. REBIF [Suspect]
     Indication: MULTIPLE SCLEROSIS
     Dosage: 44 MCG, 3 IN 1 WK, SUBCUTANEOUS
     Route: 058
     Dates: start: 20090220

REACTIONS (5)
  - ACCESSORY NERVE DISORDER [None]
  - DYSPHAGIA [None]
  - GLOSSOPHARYNGEAL NERVE DISORDER [None]
  - THYROID NEOPLASM [None]
  - VAGUS NERVE DISORDER [None]
